FAERS Safety Report 5543115-7 (Version None)
Quarter: 2007Q4

REPORT INFORMATION
  Report Type: 
  Country: None (occurrence: None)
  Receive Date: 20071206
  Receipt Date: 20071121
  Transmission Date: 20080405
  Serious: Yes (Hospitalization)
  Sender: FDA-Public Use
  Company Number: FACT0700218

PATIENT
  Age: 45 Year
  Sex: Male

DRUGS (7)
  1. FACTIVE [Suspect]
     Indication: PNEUMONIA
     Dosage: 320 MG QD
     Dates: start: 20071030, end: 20071101
  2. CRESTOR [Concomitant]
  3. IMITREX [Concomitant]
  4. LEVAQUIN [Concomitant]
  5. AZITHROMYCIN [Concomitant]
  6. ALBUTEROL [Concomitant]
  7. SYMBICORT [Concomitant]

REACTIONS (2)
  - GUILLAIN-BARRE SYNDROME [None]
  - NERVOUS SYSTEM DISORDER [None]
